FAERS Safety Report 7190541-9 (Version None)
Quarter: 2010Q4

REPORT INFORMATION
  Report Type: 
  Country: None (occurrence: None)
  Receive Date: 20101221
  Receipt Date: 20101221
  Transmission Date: 20110411
  Serious: Yes (Life-Threatening, Other)
  Sender: FDA-Public Use
  Company Number: None

PATIENT
  Age: 48 Year
  Sex: Male
  Weight: 117.9352 kg

DRUGS (1)
  1. FLOMAX [Suspect]
     Indication: POLLAKIURIA
     Dosage: 0.4MG ONCE PER DAY PO
     Route: 048
     Dates: start: 20101216, end: 20101231

REACTIONS (2)
  - DEPRESSION [None]
  - SUICIDAL IDEATION [None]
